FAERS Safety Report 6739464-7 (Version None)
Quarter: 2010Q2

REPORT INFORMATION
  Report Type: 
  Country: None (occurrence: None)
  Receive Date: 20100521
  Receipt Date: 20100513
  Transmission Date: 20101027
  Serious: Yes (Other)
  Sender: FDA-Public Use
  Company Number: OSCN-NO-1004L-0114

PATIENT
  Age: 71 Year
  Sex: Female

DRUGS (2)
  1. OMNISCAN [Suspect]
     Indication: DRUG USE FOR UNKNOWN INDICATION
     Dosage: SINGLE DOSE,
     Dates: start: 20070101, end: 20070101
  2. OMNISCAN [Suspect]
     Indication: DRUG USE FOR UNKNOWN INDICATION
     Dosage: SINGLE DOSE,
     Dates: start: 20070101, end: 20070101

REACTIONS (1)
  - NO ADVERSE EVENT [None]
